FAERS Safety Report 21252921 (Version 1)
Quarter: 2022Q3

REPORT INFORMATION
  Report Type: Spontaneous
  Country: CN (occurrence: CN)
  Receive Date: 20220825
  Receipt Date: 20220825
  Transmission Date: 20221026
  Serious: Yes (Hospitalization)
  Sender: FDA-Public Use
  Company Number: CN-PFIZER INC-PV202200047073

PATIENT
  Age: 67 Year
  Sex: Male
  Weight: 53 kg

DRUGS (2)
  1. TIGECYCLINE [Suspect]
     Active Substance: TIGECYCLINE
     Indication: Pneumonia
     Dosage: 50 MG, 2X/DAY
     Route: 041
     Dates: start: 20220810, end: 20220818
  2. SHENQIFUZHENG [Concomitant]
     Indication: Pneumonia
     Dosage: 250 ML, 1X/DAY
     Route: 041
     Dates: start: 20220803, end: 20220818

REACTIONS (3)
  - Nausea [Recovered/Resolved]
  - Vomiting [Recovered/Resolved]
  - Decreased appetite [Recovered/Resolved]

NARRATIVE: CASE EVENT DATE: 20220810
